FAERS Safety Report 16767542 (Version 2)
Quarter: 2019Q3

REPORT INFORMATION
  Report Type: Spontaneous
  Country: US (occurrence: US)
  Receive Date: 20190903
  Receipt Date: 20190906
  Transmission Date: 20191005
  Serious: No
  Sender: FDA-Public Use
  Company Number: US-009507513-1908USA008004

PATIENT
  Sex: Male

DRUGS (4)
  1. MEVACOR [Suspect]
     Active Substance: LOVASTATIN
  2. ZETIA [Suspect]
     Active Substance: EZETIMIBE
     Route: 048
  3. LIPITOR [Suspect]
     Active Substance: ATORVASTATIN CALCIUM
  4. CRESTOR [Suspect]
     Active Substance: ROSUVASTATIN CALCIUM

REACTIONS (4)
  - Constipation [Unknown]
  - Myalgia [Unknown]
  - Therapeutic product effect decreased [Unknown]
  - Gastrointestinal pain [Unknown]
